FAERS Safety Report 16818132 (Version 1)
Quarter: 2019Q3

REPORT INFORMATION
  Report Type: Spontaneous
  Country: US (occurrence: US)
  Receive Date: 20190917
  Receipt Date: 20190917
  Transmission Date: 20191005
  Serious: No
  Sender: FDA-Public Use
  Company Number: US-PERRIGO-19US002789

PATIENT
  Age: 65 Year
  Sex: Male
  Weight: 83.45 kg

DRUGS (1)
  1. TESTOSTERONE. [Suspect]
     Active Substance: TESTOSTERONE
     Indication: BLOOD TESTOSTERONE DECREASED
     Dosage: UNK, DAILY
     Route: 061
     Dates: start: 201902

REACTIONS (2)
  - Underdose [Unknown]
  - Product administered at inappropriate site [Unknown]

NARRATIVE: CASE EVENT DATE: 201902
